FAERS Safety Report 18955211 (Version 1)
Quarter: 2021Q1

REPORT INFORMATION
  Report Type: Report from Study
  Country: CA (occurrence: CA)
  Receive Date: 20210301
  Receipt Date: 20210301
  Transmission Date: 20210420
  Serious: Yes (Hospitalization, Other)
  Sender: FDA-Public Use
  Company Number: CA-TAKEDA-CA201918195

PATIENT
  Age: 38 Year
  Sex: Male

DRUGS (3)
  1. BISOPROLOL [Concomitant]
     Active Substance: BISOPROLOL
     Indication: PRODUCT USED FOR UNKNOWN INDICATION
  2. GAMMAGARD LIQUID [Concomitant]
     Active Substance: HUMAN IMMUNOGLOBULIN G
     Indication: PRODUCT USED FOR UNKNOWN INDICATION
  3. GAMMAGARD LIQUID [Suspect]
     Active Substance: HUMAN IMMUNOGLOBULIN G
     Indication: NERVOUS SYSTEM DISORDER
     Dosage: 43 GRAM, 1X/WEEK
     Route: 058
     Dates: start: 20190603

REACTIONS (6)
  - Leg amputation [Recovering/Resolving]
  - Arm amputation [Recovering/Resolving]
  - Inappropriate schedule of product administration [Unknown]
  - Blood pressure increased [Unknown]
  - Osteomyelitis [Recovering/Resolving]
  - Product use in unapproved indication [Unknown]

NARRATIVE: CASE EVENT DATE: 20190603
